FAERS Safety Report 11687465 (Version 1)
Quarter: 2015Q4

REPORT INFORMATION
  Report Type: Report from Study
  Country: US (occurrence: US)
  Receive Date: 20151030
  Receipt Date: 20151030
  Transmission Date: 20160304
  Serious: Yes (Death, Hospitalization, Other)
  Sender: FDA-Public Use
  Company Number: US-BAYER-2015-445326

PATIENT
  Age: 65 Year
  Sex: Male

DRUGS (2)
  1. STIVARGA [Suspect]
     Active Substance: REGORAFENIB
     Indication: COLON CANCER
     Dosage: 4X40MG, TOTAL DAILY DOSE 160MG
     Route: 048
     Dates: start: 20150901
  2. STIVARGA [Suspect]
     Active Substance: REGORAFENIB
     Indication: COLORECTAL CANCER
     Dosage: 160 MG, QD (4 X 40 MG DAILY)
     Route: 048
     Dates: start: 20150921

REACTIONS (10)
  - Palmar-plantar erythrodysaesthesia syndrome [None]
  - Fall [None]
  - Death [Fatal]
  - Gait disturbance [None]
  - Spinal compression fracture [None]
  - Vomiting [None]
  - Feeding disorder [None]
  - Blister [None]
  - Pain [None]
  - Nausea [None]

NARRATIVE: CASE EVENT DATE: 201510
